FAERS Safety Report 6758096-8 (Version None)
Quarter: 2010Q2

REPORT INFORMATION
  Report Type: 
  Country: None (occurrence: None)
  Receive Date: 20100607
  Receipt Date: 20100528
  Transmission Date: 20101027
  Serious: Yes (Life-Threatening)
  Sender: FDA-Public Use
  Company Number: FR-MPIJNJ-2007-02756

PATIENT

DRUGS (7)
  1. VELCADE [Suspect]
     Indication: MANTLE CELL LYMPHOMA
     Dosage: 1.30 MG/M2, UNK
     Route: 042
     Dates: start: 20070618, end: 20070618
  2. ADRIBLASTINE [Suspect]
     Indication: MANTLE CELL LYMPHOMA
     Dosage: 9.00 MG/M2, UNK
     Route: 042
     Dates: start: 20070618, end: 20070619
  3. ADRIBLASTINE [Suspect]
     Dosage: 9.00 MG/M2, UNK
     Route: 042
     Dates: start: 20070622
  4. DEXAMETHASONE [Suspect]
     Indication: MANTLE CELL LYMPHOMA
     Dosage: 40.00 MG, UNK
     Route: 048
     Dates: start: 20070618
  5. PRIMPERAN TAB [Concomitant]
     Dosage: 30.00 MG, UNK
     Route: 042
     Dates: start: 20070618
  6. ZYLORIC [Concomitant]
     Dosage: 300.00 UNK, UNK
     Route: 048
     Dates: start: 20070618
  7. ATARAX [Concomitant]
     Dosage: 25 MG, UNK
     Route: 048
     Dates: start: 20070618

REACTIONS (2)
  - ACUTE PULMONARY OEDEMA [None]
  - ATRIAL FIBRILLATION [None]
